FAERS Safety Report 7086372-0 (Version None)
Quarter: 2010Q4

REPORT INFORMATION
  Report Type: 
  Country: None (occurrence: None)
  Receive Date: 20101105
  Receipt Date: 20101025
  Transmission Date: 20110411
  Serious: Yes (Hospitalization)
  Sender: FDA-Public Use
  Company Number: NL-TEVA-253383ISR

PATIENT
  Sex: Male

DRUGS (15)
  1. PREDNISOLONE [Suspect]
     Indication: PROSTATE CANCER METASTATIC
     Route: 048
     Dates: start: 20100128
  2. ABIRATERONE ACETATE/PLACEBO - BLINDED [Suspect]
     Indication: PROSTATE CANCER METASTATIC
     Route: 048
     Dates: start: 20100128
  3. PANTOPRAZOLE [Concomitant]
     Indication: GASTRIC POLYPS
     Route: 048
     Dates: start: 20091211
  4. OXYCODONE HCL [Concomitant]
     Indication: ARTHRALGIA
     Route: 048
     Dates: start: 20100503
  5. NADROPARIN [Concomitant]
     Route: 058
     Dates: start: 20100627
  6. PARACETAMOL [Concomitant]
     Indication: PELVIC FRACTURE
     Route: 048
     Dates: start: 20100627
  7. GOSERELIN [Concomitant]
     Indication: HORMONE THERAPY
     Dates: start: 20041207
  8. TRIAMCINOLONE [Concomitant]
     Indication: ECZEMA
     Route: 062
     Dates: start: 20100709
  9. METFORMIN HCL [Concomitant]
     Indication: DIABETES MELLITUS
     Route: 048
     Dates: start: 20100709
  10. NULYTELY [Concomitant]
     Indication: CONSTIPATION
     Route: 048
     Dates: start: 20100712
  11. GLIMEPIRIDE [Concomitant]
     Indication: DIABETES MELLITUS
     Route: 048
     Dates: start: 20100709
  12. CARBASALATE CALCIUM [Concomitant]
     Route: 048
     Dates: start: 20010101
  13. HYDROCHLOROTHIAZIDE [Concomitant]
     Indication: HYPERTENSION
     Route: 048
     Dates: start: 20010101
  14. FERROUS FUMARATE [Concomitant]
     Indication: HAEMOGLOBIN DECREASED
     Route: 048
     Dates: start: 20100128
  15. GOSERELIN [Concomitant]
     Indication: PROSTATE CANCER
     Route: 058
     Dates: start: 20100128

REACTIONS (1)
  - PNEUMONIA [None]
